FAERS Safety Report 5769712-1 (Version None)
Quarter: 2008Q2

REPORT INFORMATION
  Report Type: 
  Country: None (occurrence: None)
  Receive Date: 20080612
  Receipt Date: 20080405
  Transmission Date: 20081010
  Serious: No
  Sender: FDA-Public Use
  Company Number: US-ABBOTT-08P-163-0445732-00

PATIENT
  Sex: Male
  Weight: 111.23 kg

DRUGS (4)
  1. HUMIRA [Suspect]
     Indication: PSORIASIS
     Dosage: 80 MG ONCE
     Route: 058
     Dates: start: 20080403, end: 20080403
  2. HUMIRA [Suspect]
     Indication: ARTHRITIS
     Dosage: 40 MG ONCE
     Dates: start: 20080403, end: 20080403
  3. HUMIRA [Suspect]
     Dosage: 40 MG EOW
     Dates: start: 20080403, end: 20080403
  4. IBUPROFEN OVER THE COUNTER [Concomitant]
     Indication: PAIN

REACTIONS (2)
  - JOINT SWELLING [None]
  - OEDEMA PERIPHERAL [None]
